FAERS Safety Report 5269781-1 (Version None)
Quarter: 2007Q1

REPORT INFORMATION
  Report Type: 
  Country: None (occurrence: None)
  Receive Date: 20070320
  Receipt Date: 20070307
  Transmission Date: 20070707
  Serious: Yes (Other)
  Sender: FDA-Public Use
  Company Number: IT-ELI_LILLY_AND_COMPANY-IT200702003064

PATIENT
  Age: 64 Year
  Sex: Female

DRUGS (2)
  1. FORTEO [Suspect]
     Indication: SPINAL FRACTURE
     Dosage: 20 UG, DAILY (1/D)
     Route: 058
     Dates: start: 20051001, end: 20060622
  2. CACIT D3 [Concomitant]
     Dates: start: 20051001, end: 20060622

REACTIONS (6)
  - ANAEMIA [None]
  - ASTHENIA [None]
  - DYSPEPSIA [None]
  - GAIT DISTURBANCE [None]
  - LEUKAEMIA [None]
  - NAUSEA [None]
